FAERS Safety Report 23450514 (Version 1)
Quarter: 2024Q1

REPORT INFORMATION
  Report Type: Other
  Country: US (occurrence: None)
  Receive Date: 20240129
  Receipt Date: 20240129
  Transmission Date: 20240410
  Serious: Yes (Other)
  Sender: FDA-Public Use
  Company Number: US-ROCHE-3497224

PATIENT

DRUGS (1)
  1. MOSUNETUZUMAB [Suspect]
     Active Substance: MOSUNETUZUMAB
     Indication: Marginal zone lymphoma
     Route: 065

REACTIONS (10)
  - Pneumonia [Unknown]
  - Herpes zoster [Unknown]
  - Hypertension [Unknown]
  - Neutropenia [Unknown]
  - Cytokine release syndrome [Unknown]
  - Diarrhoea [Unknown]
  - Syncope [Unknown]
  - Headache [Unknown]
  - Thrombocytopenia [Unknown]
  - Injection site reaction [Unknown]
